FAERS Safety Report 5742106-0 (Version None)
Quarter: 2008Q2

REPORT INFORMATION
  Report Type: 
  Country: None (occurrence: None)
  Receive Date: 20080514
  Receipt Date: 20080514
  Transmission Date: 20081010
  Serious: No
  Sender: FDA-Public Use
  Company Number: None

PATIENT
  Sex: Male
  Weight: 58.9676 kg

DRUGS (2)
  1. SINGULAIR [Suspect]
     Indication: ASTHMA
     Dosage: 5 MG       1 TABLET DAILY
     Dates: start: 20050101, end: 20080425
  2. SINGULAIR [Suspect]
     Indication: MULTIPLE ALLERGIES
     Dosage: 5 MG       1 TABLET DAILY
     Dates: start: 20050101, end: 20080425

REACTIONS (2)
  - ANXIETY [None]
  - DEPRESSION [None]
